FAERS Safety Report 7469581-8 (Version None)
Quarter: 2011Q2

REPORT INFORMATION
  Report Type: 
  Country: None (occurrence: None)
  Receive Date: 20110510
  Receipt Date: 20110330
  Transmission Date: 20111010
  Serious: Yes (Death, Other)
  Sender: FDA-Public Use
  Company Number: US-BAYER-200934399NA

PATIENT
  Age: 70 Year
  Sex: Male
  Weight: 149.66 kg

DRUGS (38)
  1. TRASYLOL [Suspect]
     Indication: CORONARY ARTERY BYPASS
     Dosage: 20 ML, Q1HR
     Route: 042
     Dates: start: 20040122, end: 20040122
  2. ATACAND HCT [Concomitant]
     Dosage: 60 MG, BID
     Route: 048
  3. REGLAN [Concomitant]
     Dosage: UNK
     Route: 042
     Dates: start: 20040122
  4. BACITRACIN [Concomitant]
     Dosage: 50,000 U
     Dates: start: 20040122, end: 20040122
  5. HEPARIN [Concomitant]
     Dosage: 5000 UNITS X 2
     Dates: start: 20040122, end: 20040122
  6. CELEBREX [Concomitant]
     Dosage: 200 MG, QD
     Route: 048
  7. HYTRIN [Concomitant]
     Dosage: 5 MG, QD
     Route: 048
  8. FENTANYL [Concomitant]
     Dosage: 20 ML, UNK
     Route: 042
     Dates: start: 20040122
  9. LIPITOR [Concomitant]
     Dosage: 10 MG, QD
     Route: 048
  10. MORPHINE [Concomitant]
     Dosage: 10 MG, UNK
     Route: 042
     Dates: start: 20040122
  11. INSULIN [Concomitant]
     Dosage: UNK
     Route: 041
     Dates: start: 20040122
  12. INSULIN [Concomitant]
     Dosage: SLIDING SCALE
     Route: 058
     Dates: start: 20040115
  13. AMIODARONE [Concomitant]
     Dosage: 15 MG, UNK
     Route: 042
  14. PROPOFOL [Concomitant]
     Dosage: 20 MG, UNK
     Route: 042
     Dates: start: 20040122
  15. HEPARIN [Concomitant]
     Dosage: 50000 UNITS
     Route: 042
     Dates: start: 20040122, end: 20040122
  16. TRASYLOL [Suspect]
     Indication: MITRAL VALVE REPAIR
     Dosage: 50ML/HR
     Dates: start: 20040122, end: 20040122
  17. LASIX [Concomitant]
     Dosage: 40 MG, QD
     Route: 048
  18. PANCURONIUM BROMIDE [Concomitant]
     Dosage: 30 MG, UNK
     Route: 042
     Dates: start: 20040122
  19. LEVOPHED [Concomitant]
     Dosage: 45 MG, UNK
     Route: 042
     Dates: start: 20040122
  20. GLYBURIDE [Concomitant]
     Dosage: 2.5 MG, BID
     Route: 048
     Dates: start: 20040116
  21. PLAVIX [Concomitant]
     Dosage: 300 MG, UNK
     Route: 048
     Dates: start: 20040115, end: 20040115
  22. LIDOCAINE [Concomitant]
     Dosage: 200 MG, UNK
     Route: 042
     Dates: start: 20040122, end: 20040122
  23. NIACIN [Concomitant]
     Dosage: 500 MG, QD
     Route: 048
  24. EPINEPHRINE [Concomitant]
     Dosage: 45 MG, UNK
     Route: 042
     Dates: start: 20040122
  25. METOPROLOL SUCCINATE [Concomitant]
     Dosage: 25 MG, EVERY 6 HOURS
     Route: 048
     Dates: start: 20040115
  26. NITROGLYCERIN [Concomitant]
     Dosage: 1/2 INCH TO ANTERIOR CHEST WALL EVERY 6 HOURS
     Route: 061
     Dates: start: 20040115
  27. NORVASC [Concomitant]
     Dosage: 10 MG, QD
     Route: 048
  28. VERSED [Concomitant]
     Dosage: 25 MG, UNK
     Route: 042
     Dates: start: 20040122
  29. DOXAZOSIN MESYLATE [Concomitant]
     Dosage: 5 MG, HS
     Route: 048
     Dates: start: 20040115
  30. LOVENOX [Concomitant]
     Dosage: 150 MG, INJECTION
     Route: 058
     Dates: start: 20040115
  31. GLUCOVANCE [Concomitant]
     Dosage: 1.25/250MG QD
     Route: 048
  32. ZINACEF [Concomitant]
     Dosage: UNK
     Route: 042
     Dates: start: 20040122
  33. VASOPRESSIN [Concomitant]
     Dosage: UNK
     Route: 042
     Dates: start: 20040122
  34. K-DUR [Concomitant]
     Dosage: 10 MEQ, QD
     Route: 048
  35. LASIX [Concomitant]
     Dosage: 30 MG, UNK
     Route: 042
     Dates: start: 20040122
  36. DARVOCET [Concomitant]
     Dosage: AS NEEDED
     Route: 048
  37. ACETYLSALICYLIC ACID SRT [Concomitant]
     Dosage: 325 MG, QD
     Route: 048
     Dates: start: 20040116
  38. LEVAQUIN [Concomitant]
     Dosage: 500 MG, QD
     Route: 048
     Dates: start: 20040120

REACTIONS (14)
  - ANXIETY [None]
  - UNEVALUABLE EVENT [None]
  - MULTI-ORGAN FAILURE [None]
  - EMOTIONAL DISTRESS [None]
  - DEATH [None]
  - INJURY [None]
  - ANHEDONIA [None]
  - RENAL INJURY [None]
  - DEPRESSION [None]
  - NERVOUSNESS [None]
  - RENAL FAILURE [None]
  - FEAR [None]
  - PAIN [None]
  - DISABILITY [None]
